FAERS Safety Report 9055961 (Version 1)
Quarter: 2013Q1

REPORT INFORMATION
  Report Type: Spontaneous
  Country: US (occurrence: US)
  Receive Date: 20130206
  Receipt Date: 20130206
  Transmission Date: 20140127
  Serious: No
  Sender: FDA-Public Use
  Company Number: US-ALLERGAN-1200712US

PATIENT
  Sex: Male

DRUGS (4)
  1. RESTASIS [Suspect]
     Indication: DRY EYE
     Dosage: 2 GTT, BID
     Route: 047
     Dates: start: 201003
  2. REFRESH OPTIVE [Concomitant]
     Indication: DRY EYE
     Dosage: UNK
  3. GENTEEL [Concomitant]
     Indication: DRY EYE
     Dosage: UNK
  4. SYSTANE [Concomitant]
     Indication: DRY EYE
     Dosage: UNK

REACTIONS (1)
  - Foreign body sensation in eyes [Not Recovered/Not Resolved]
